FAERS Safety Report 20131573 (Version 1)
Quarter: 2021Q4

REPORT INFORMATION
  Report Type: Spontaneous
  Country: RU (occurrence: RU)
  Receive Date: 20211130
  Receipt Date: 20211130
  Transmission Date: 20220303
  Serious: Yes (Other)
  Sender: FDA-Public Use
  Company Number: RU-BAYER-2021A256812

PATIENT
  Age: 64 Year
  Sex: Female

DRUGS (4)
  1. ADEMPAS [Suspect]
     Active Substance: RIOCIGUAT
     Indication: Pulmonary arterial hypertension
     Dosage: 2.5 MG, TID
     Dates: start: 2016
  2. MACITENTAN [Concomitant]
     Active Substance: MACITENTAN
     Indication: Pulmonary arterial hypertension
     Dosage: 10 MG, QD
     Dates: start: 2009
  3. SELEXIPAG [Concomitant]
     Active Substance: SELEXIPAG
     Indication: Pulmonary arterial hypertension
     Dosage: UNK
     Dates: start: 202010
  4. SELEXIPAG [Concomitant]
     Active Substance: SELEXIPAG
     Indication: Pulmonary arterial hypertension
     Dosage: 1200 MG, BID

REACTIONS (5)
  - Angina pectoris [None]
  - Dyspnoea exertional [Not Recovered/Not Resolved]
  - Productive cough [None]
  - Palpitations [None]
  - Oedema peripheral [None]

NARRATIVE: CASE EVENT DATE: 20200901
